FAERS Safety Report 16462156 (Version 1)
Quarter: 2019Q2

REPORT INFORMATION
  Report Type: Spontaneous
  Country: TR (occurrence: TR)
  Receive Date: 20190621
  Receipt Date: 20190621
  Transmission Date: 20190711
  Serious: Yes (Other)
  Sender: FDA-Public Use
  Company Number: TR-009507513-1906TUR007757

PATIENT
  Sex: Male

DRUGS (1)
  1. JANUVIA [Suspect]
     Active Substance: SITAGLIPTIN PHOSPHATE
     Dosage: ^USED 14 OF THE TABLETS IN THE BOX IN TOTAL^
     Route: 048

REACTIONS (2)
  - Herpes zoster [Recovered/Resolved]
  - Dermatitis bullous [Recovered/Resolved]
